FAERS Safety Report 6828512-1 (Version None)
Quarter: 2010Q3

REPORT INFORMATION
  Report Type: 
  Country: None (occurrence: None)
  Receive Date: 20100709
  Receipt Date: 20100702
  Transmission Date: 20110219
  Serious: Yes (Life-Threatening)
  Sender: FDA-Public Use
  Company Number: US-ABBOTT-10P-163-0655814-00

PATIENT
  Age: 45 Year
  Sex: Male
  Weight: 111.8 kg

DRUGS (6)
  1. RITONAVIR SOFT GELATIN CAPSULES [Suspect]
     Indication: HIV INFECTION
     Route: 048
     Dates: start: 20100520, end: 20100630
  2. ATAZANAVIR [Concomitant]
     Indication: HIV INFECTION
     Route: 048
     Dates: start: 20100520, end: 20100630
  3. TRUVADA [Concomitant]
     Indication: HIV INFECTION
     Dosage: 200MG/500MG, 1 IN 1D
     Route: 048
     Dates: start: 20100520, end: 20100630
  4. METFORMIN HCL [Concomitant]
     Indication: PRODUCT USED FOR UNKNOWN INDICATION
  5. LISINOPRIL [Concomitant]
     Indication: PRODUCT USED FOR UNKNOWN INDICATION
  6. PIOGLITAZONE HCL [Concomitant]
     Indication: PRODUCT USED FOR UNKNOWN INDICATION

REACTIONS (2)
  - BLOOD BILIRUBIN INCREASED [None]
  - TRANSAMINASES INCREASED [None]
